FAERS Safety Report 24809063 (Version 1)
Quarter: 2025Q1

REPORT INFORMATION
  Report Type: Spontaneous
  Country: US (occurrence: US)
  Receive Date: 20250106
  Receipt Date: 20250106
  Transmission Date: 20250409
  Serious: Yes (Other)
  Sender: HIKMA
  Company Number: US-HIKMA PHARMACEUTICALS USA INC.-US-H14001-24-12134

PATIENT
  Sex: Male

DRUGS (1)
  1. LITHIUM [Suspect]
     Active Substance: LITHIUM
     Indication: Bipolar disorder
     Dosage: 300 MILLIGRAM, QD
     Route: 048

REACTIONS (3)
  - Retinal detachment [Unknown]
  - Intraocular pressure increased [Unknown]
  - Impaired healing [Unknown]
